FAERS Safety Report 10076672 (Version 1)
Quarter: 2014Q2

REPORT INFORMATION
  Report Type: Spontaneous
  Country: US (occurrence: US)
  Receive Date: 20140414
  Receipt Date: 20140414
  Transmission Date: 20141212
  Serious: Yes (Other)
  Sender: FDA-Public Use
  Company Number: US-ROXANE LABORATORIES, INC.-2014-RO-00593RO

PATIENT
  Age: 62 Year
  Sex: Female
  Weight: 70 kg

DRUGS (11)
  1. AZATHIOPRINE [Suspect]
     Indication: CROHN^S DISEASE
     Dosage: 50 MG
     Route: 065
  2. PREDNISONE [Suspect]
     Indication: CROHN^S DISEASE
     Dosage: 40 MG
     Route: 048
  3. WARFARIN [Suspect]
     Indication: PRODUCT USED FOR UNKNOWN INDICATION
     Route: 065
  4. ALENDRONATE [Concomitant]
     Route: 065
  5. CYANOCOBALAMIN [Concomitant]
     Route: 065
  6. FOLIC ACID [Concomitant]
     Route: 065
  7. LANSOPRAZOLE [Concomitant]
     Route: 065
  8. LISINOPRIL [Concomitant]
     Route: 065
  9. PYRIDOXINE [Concomitant]
     Route: 065
  10. VITAMIN D [Concomitant]
     Route: 065
  11. ACETAMINOPHEN [Concomitant]
     Route: 065

REACTIONS (2)
  - Drug-induced liver injury [Recovered/Resolved]
  - International normalised ratio increased [Recovered/Resolved]
